FAERS Safety Report 6580263-7 (Version None)
Quarter: 2010Q1

REPORT INFORMATION
  Report Type: 
  Country: None (occurrence: None)
  Receive Date: 20100212
  Receipt Date: 20100112
  Transmission Date: 20100710
  Serious: No
  Sender: FDA-Public Use
  Company Number: US-BAYER-201011363NA

PATIENT
  Age: 72 Year
  Sex: Male
  Weight: 77 kg

DRUGS (1)
  1. CIPRO [Suspect]
     Indication: PROSTATITIS
     Dates: start: 20100106

REACTIONS (4)
  - DIZZINESS [None]
  - HEADACHE [None]
  - HYPOPHAGIA [None]
  - NAUSEA [None]
